FAERS Safety Report 5866160-0 (Version None)
Quarter: 2008Q3

REPORT INFORMATION
  Report Type: 
  Country: None (occurrence: None)
  Receive Date: 20080829
  Receipt Date: 20080821
  Transmission Date: 20090109
  Serious: Yes (Other)
  Sender: FDA-Public Use
  Company Number: GB-MERCK-0808GBR00090

PATIENT
  Age: 31 Year
  Sex: Female

DRUGS (11)
  1. DECADRON SRC [Suspect]
     Indication: ANAESTHESIA
     Route: 065
  2. EPINEPHRINE [Suspect]
     Indication: HYPOTENSION
     Route: 042
  3. EPINEPHRINE [Suspect]
     Indication: TACHYCARDIA
     Route: 042
  4. MORPHINE [Suspect]
     Indication: ANAESTHESIA
     Route: 065
  5. ONDANSETRON [Suspect]
     Route: 065
  6. ALFENTANIL HYDROCHLORIDE [Concomitant]
     Indication: ANAESTHESIA
     Route: 065
  7. AMOXICILLIN AND CLAVULANATE POTASSIUM [Concomitant]
     Route: 065
  8. NITROUS OXIDE [Suspect]
     Indication: MAINTENANCE OF ANAESTHESIA
     Route: 065
  9. PROPOFOL [Concomitant]
     Indication: ANAESTHESIA
     Route: 065
  10. SEVOFLURANE [Concomitant]
     Indication: MAINTENANCE OF ANAESTHESIA
     Route: 065
  11. INDIGOTINDISULFONATE SODIUM [Suspect]
     Route: 065

REACTIONS (2)
  - ANAPHYLACTIC REACTION [None]
  - DRUG INEFFECTIVE [None]
